FAERS Safety Report 26105947 (Version 1)
Quarter: 2025Q4

REPORT INFORMATION
  Report Type: Spontaneous
  Country: US (occurrence: US)
  Receive Date: 20251201
  Receipt Date: 20251201
  Transmission Date: 20260119
  Serious: Yes (Hospitalization, Other)
  Sender: UNICHEM
  Company Number: US-UNICHEM LABORATORIES LIMITED-UNI-2025-US-003960

PATIENT

DRUGS (1)
  1. METFORMIN [Suspect]
     Active Substance: METFORMIN HYDROCHLORIDE
     Indication: Product used for unknown indication
     Dosage: 500 MILLIGRAM (120 TABLETS)
     Route: 065

REACTIONS (4)
  - Intentional overdose [Unknown]
  - Hypoglycaemia [Recovering/Resolving]
  - Blood lactic acid increased [Unknown]
  - Off label use [Unknown]
